FAERS Safety Report 16465904 (Version 1)
Quarter: 2019Q2

REPORT INFORMATION
  Report Type: Spontaneous
  Country: GT (occurrence: GT)
  Receive Date: 20190621
  Receipt Date: 20190621
  Transmission Date: 20190711
  Serious: Yes (Hospitalization, Other)
  Sender: FDA-Public Use
  Company Number: GT-009507513-1906GTM007462

PATIENT
  Age: 90 Year
  Sex: Male

DRUGS (1)
  1. KEYTRUDA [Suspect]
     Active Substance: PEMBROLIZUMAB
     Indication: PROSTATE CANCER
     Dosage: UNK
     Dates: start: 20190531

REACTIONS (10)
  - Drug diversion [Unknown]
  - Off label use [Unknown]
  - White blood cell count decreased [Not Recovered/Not Resolved]
  - Decreased appetite [Not Recovered/Not Resolved]
  - Asthenia [Not Recovered/Not Resolved]
  - Platelet count decreased [Not Recovered/Not Resolved]
  - Infection [Unknown]
  - Polyuria [Not Recovered/Not Resolved]
  - Chills [Not Recovered/Not Resolved]
  - Immune-mediated adverse reaction [Unknown]

NARRATIVE: CASE EVENT DATE: 20190531
